FAERS Safety Report 15090162 (Version 1)
Quarter: 2018Q2

REPORT INFORMATION
  Report Type: Spontaneous
  Country: US (occurrence: US)
  Receive Date: 20180629
  Receipt Date: 20180629
  Transmission Date: 20180711
  Serious: Yes (Other)
  Sender: FDA-Public Use
  Company Number: US-TEVA-2018-US-912982

PATIENT
  Sex: Female

DRUGS (3)
  1. FENTANYL. [Suspect]
     Active Substance: FENTANYL
  2. FENTANYL. [Suspect]
     Active Substance: FENTANYL
  3. FENTANYL. [Suspect]
     Active Substance: FENTANYL
     Indication: PAIN
     Dates: start: 2017

REACTIONS (6)
  - Drug diversion [Unknown]
  - Drug ineffective [Unknown]
  - Product prescribing issue [Unknown]
  - Loss of consciousness [Unknown]
  - Insomnia [Unknown]
  - Product use in unapproved indication [Unknown]
